FAERS Safety Report 23644051 (Version 2)
Quarter: 2024Q1

REPORT INFORMATION
  Report Type: Spontaneous
  Country: US (occurrence: US)
  Receive Date: 20240318
  Receipt Date: 20240320
  Transmission Date: 20240410
  Serious: No
  Sender: FDA-Public Use
  Company Number: US-SA-SAC20240312001333

PATIENT
  Sex: Female
  Weight: 61.2 kg

DRUGS (1)
  1. DUPIXENT [Suspect]
     Active Substance: DUPILUMAB
     Indication: Illness
     Dosage: 300 MG, QOW
     Route: 058

REACTIONS (6)
  - Peripheral swelling [Unknown]
  - Malaise [Unknown]
  - Illness [Unknown]
  - Eczema [Unknown]
  - Eye swelling [Unknown]
  - Rash [Unknown]
